FAERS Safety Report 8899120 (Version 1)
Quarter: 2012Q4

REPORT INFORMATION
  Report Type: 
  Country: US (occurrence: US)
  Receive Date: 20121108
  Receipt Date: 20121108
  Transmission Date: 20130627
  Serious: No
  Sender: FDA-Public Use
  Company Number: US-AMGEN-USASP2012033634

PATIENT
  Age: 35 Year
  Sex: Female
  Weight: 77.1 kg

DRUGS (15)
  1. ENBREL [Suspect]
     Indication: PRODUCT USED FOR UNKNOWN INDICATION
     Dosage: 50 mg, qwk
     Route: 058
  2. KLONOPIN [Concomitant]
     Dosage: 1 mg, UNK
  3. ZOCOR [Concomitant]
     Dosage: 5 mg, UNK
  4. XYZAL [Concomitant]
     Dosage: 5 mg, UNK
  5. SERTRALINE [Concomitant]
     Dosage: 25 mg, UNK
  6. METHOTREXATE [Concomitant]
     Dosage: 2.5 mg, UNK
  7. TRAMADOL HCL [Concomitant]
     Dosage: 50 mg, UNK
  8. NAPROXEN SOD [Concomitant]
     Dosage: 275 mg, UNK
  9. GABAPENTIN [Concomitant]
     Dosage: 100 mg, UNK
  10. PREVACID [Concomitant]
     Dosage: 15 mg, UNK
  11. CYCLOBENZAPRINE [Concomitant]
     Dosage: 5 mg, UNK
  12. MORPHINE SULFATE [Concomitant]
     Dosage: 20 mg, UNK
  13. SULFASALAZIN [Concomitant]
     Dosage: 500 mg, UNK
  14. FOLIC ACID [Concomitant]
     Dosage: UNK
  15. OMEGA-3                            /01168901/ [Concomitant]
     Dosage: 1000 mg, UNK

REACTIONS (7)
  - Weight increased [Unknown]
  - Inflammation [Unknown]
  - Pain in extremity [Unknown]
  - Arthralgia [Unknown]
  - Myalgia [Unknown]
  - Muscle spasms [Unknown]
  - Contusion [Unknown]
